FAERS Safety Report 8620710-X (Version None)
Quarter: 2012Q3

REPORT INFORMATION
  Report Type: 
  Country: None (occurrence: None)
  Receive Date: 20120824
  Receipt Date: 20120817
  Transmission Date: 20120928
  Serious: Yes (Hospitalization)
  Sender: FDA-Public Use
  Company Number: CH-FRI-1000038118

PATIENT
  Sex: Male

DRUGS (12)
  1. ATACAND [Suspect]
     Indication: HYPERTENSIVE HEART DISEASE
     Dosage: 8 MG
     Route: 048
     Dates: end: 20120621
  2. ASPIRIN [Concomitant]
     Dosage: 100 MG
     Route: 048
  3. VI-DE 3 [Concomitant]
     Dosage: 4500 IU
     Route: 048
  4. NEBIVOLOL [Suspect]
     Indication: HYPERTENSIVE HEART DISEASE
     Dosage: 2.5 MG
     Route: 048
     Dates: end: 20120621
  5. SPIRONOLACTONE [Suspect]
     Indication: HYPERTENSIVE HEART DISEASE
     Dosage: 25 MG
     Route: 048
     Dates: end: 20120621
  6. CALCIMAGON D3 [Concomitant]
     Route: 048
  7. TORSEMIDE [Concomitant]
     Dosage: 50 MG
     Route: 048
  8. LANTUS [Concomitant]
     Dosage: 20 IU
     Route: 058
  9. ALLOPURINOL [Concomitant]
     Dosage: 300 MG
     Route: 048
  10. ATORVASTATIN CALCIUM [Concomitant]
     Dosage: 40 MG
     Route: 048
  11. HUMALOG [Concomitant]
     Route: 058
  12. MARCUMAR [Concomitant]
     Route: 048
     Dates: start: 20120501

REACTIONS (6)
  - HYPERKALAEMIA [None]
  - DYSPNOEA [None]
  - RENAL FAILURE CHRONIC [None]
  - BRADYCARDIA [None]
  - HYPOTENSION [None]
  - MALAISE [None]
